FAERS Safety Report 16735417 (Version 1)
Quarter: 2019Q4

REPORT INFORMATION
  Report Type: Spontaneous
  Country: US (occurrence: US)
  Receive Date: 20190823
  Receipt Date: 20190823
  Transmission Date: 20200122
  Serious: Yes (Hospitalization)
  Sender: FDA-Public Use
  Company Number: None

PATIENT
  Age: 30 Year
  Sex: Female

DRUGS (4)
  1. HUMIRA [Suspect]
     Active Substance: ADALIMUMAB
     Indication: PRODUCT USED FOR UNKNOWN INDICATION
     Dosage: ?          OTHER FREQUENCY:EVERY OTHER WEEK;?
     Route: 058
     Dates: start: 20141122
  2. NOVOLOG/URSODIOL [Concomitant]
  3. AVIANE/DITROPAN XL [Concomitant]
  4. KEPPRA/LEVEMIR [Concomitant]

REACTIONS (2)
  - Therapy cessation [None]
  - Liver transplant [None]
